FAERS Safety Report 7063695-2 (Version None)
Quarter: 2010Q4

REPORT INFORMATION
  Report Type: 
  Country: None (occurrence: None)
  Receive Date: 20101026
  Receipt Date: 20101014
  Transmission Date: 20110411
  Serious: Yes (Other)
  Sender: FDA-Public Use
  Company Number: BR-US-EMD SERONO, INC.-7022480

PATIENT
  Sex: Female

DRUGS (7)
  1. REBIF [Suspect]
     Indication: RELAPSING-REMITTING MULTIPLE SCLEROSIS
     Route: 058
     Dates: start: 20100601
  2. PARACETAMOL [Concomitant]
  3. AMYTRIL [Concomitant]
  4. OMEPRAZOLE [Concomitant]
  5. RIVOTRIL [Concomitant]
  6. PROPRANOLOL [Concomitant]
  7. OROXADIN [Concomitant]

REACTIONS (2)
  - CATARACT [None]
  - GLAUCOMA [None]
